FAERS Safety Report 7777587-4 (Version None)
Quarter: 2011Q3

REPORT INFORMATION
  Report Type: 
  Country: None (occurrence: None)
  Receive Date: 20110926
  Receipt Date: 20110915
  Transmission Date: 20111222
  Serious: Yes (Death, Hospitalization, Other)
  Sender: FDA-Public Use
  Company Number: DE-BAYER-201012177GPV

PATIENT
  Age: 73 Year
  Sex: Male
  Weight: 66 kg

DRUGS (22)
  1. ATACAND [Concomitant]
     Indication: HYPERTENSION
     Dosage: 8 MG
     Dates: start: 20100118
  2. SIMVASTATIN [Concomitant]
     Indication: HYPERCHOLESTEROLAEMIA
     Dosage: 20 MG, QD
     Route: 048
     Dates: start: 20090101
  3. OLMESARTAN MEDOXOMIL [Concomitant]
     Indication: HYPERTENSION
     Dosage: 20 MG (DAILY DOSE), , ORAL
     Route: 048
     Dates: start: 20090101
  4. SORAFENIB [Suspect]
     Indication: HEPATIC NEOPLASM MALIGNANT
     Dosage: 400 MG BID
     Route: 048
     Dates: start: 20100112, end: 20100115
  5. ALLOPURINOL [Concomitant]
  6. SODIUM CHLORIDE [Concomitant]
     Indication: PROPHYLAXIS AGAINST DEHYDRATION
     Dosage: 1000 ML
     Dates: start: 20100120, end: 20100129
  7. CIPROFLOXACIN [Concomitant]
     Indication: PERITONITIS BACTERIAL
     Dosage: 500 MG
     Dates: start: 20100119, end: 20100125
  8. LEVOTHYROXINE SODIUM [Concomitant]
     Indication: HYPOTHYROIDISM
     Dosage: 75 ?G (DAILY DOSE), , ORAL
     Route: 048
     Dates: start: 20090101
  9. JANUVIA [Concomitant]
     Indication: TYPE 2 DIABETES MELLITUS
     Dosage: 100 MG (DAILY DOSE), ,
     Dates: start: 20090101
  10. CEFPODOXIME PROXETIL [Concomitant]
     Indication: ASCITES
     Dosage: 400 MG
     Dates: start: 20100115, end: 20100212
  11. CEFTRIAXONE [Concomitant]
     Indication: PERITONITIS BACTERIAL
     Dosage: 2 MG
     Dates: start: 20100119, end: 20100125
  12. DIAGNOSTIC AGENTS [Concomitant]
     Indication: PREMEDICATION
     Dosage: 80 ML
     Dates: start: 20100112, end: 20100119
  13. METFORMIN HCL [Concomitant]
     Indication: DIABETES MELLITUS
     Dosage: 1700 MG (DAILY DOSE), , ORAL
     Route: 048
     Dates: start: 20090101
  14. LASIX [Concomitant]
     Indication: ASCITES
     Dosage: 40 MG
     Dates: start: 20100128
  15. ATROVENT [Concomitant]
     Indication: PRODUCT USED FOR UNKNOWN INDICATION
     Dosage: ON DEMAND
     Dates: start: 20100119, end: 20100204
  16. ERLOTINIB HYDROCHLORIDE [Suspect]
     Indication: HEPATIC NEOPLASM MALIGNANT
     Dosage: 150 MG QD
     Route: 048
     Dates: start: 20100112, end: 20100115
  17. ALDACTONE [POTASSIUM CANRENOATE] [Concomitant]
     Indication: ASCITES
     Dosage: 100 MG, UNK
     Dates: start: 20100128
  18. METRONIDAZOLE [Concomitant]
     Indication: ASCITES
     Dosage: 1200 MG
     Dates: start: 20100115, end: 20100212
  19. UNACID [Concomitant]
     Indication: PERITONITIS BACTERIAL
     Dosage: 4.5 G
     Dates: start: 20100119, end: 20100125
  20. DOCITON [Concomitant]
     Indication: GASTRIC DISORDER
     Dosage: 5 MG (DAILY DOSE), , ORAL
     Route: 048
     Dates: start: 20090101
  21. DOCITON [Concomitant]
     Indication: HYPERTENSION
     Dosage: 30 MG
     Dates: start: 20100115
  22. ALLOPURINOL [Concomitant]
     Indication: HYPERURICAEMIA
     Dosage: 150 MG (DAILY DOSE), , ORAL
     Route: 048
     Dates: start: 20090101, end: 20100116

REACTIONS (5)
  - GENERAL PHYSICAL HEALTH DETERIORATION [None]
  - RENAL FAILURE [None]
  - HEPATIC ENCEPHALOPATHY [None]
  - SYNCOPE [None]
  - OESOPHAGEAL VARICES HAEMORRHAGE [None]
